FAERS Safety Report 12270924 (Version 4)
Quarter: 2016Q4

REPORT INFORMATION
  Report Type: Spontaneous
  Country: US (occurrence: US)
  Receive Date: 20160415
  Receipt Date: 20161214
  Transmission Date: 20170207
  Serious: Yes (Other)
  Sender: FDA-Public Use
  Company Number: US-PFIZER INC-2016213711

PATIENT
  Age: 75 Year
  Sex: Male
  Weight: 74.84 kg

DRUGS (22)
  1. VIAGRA [Suspect]
     Active Substance: SILDENAFIL CITRATE
     Dosage: A HALF TABLET (50 MG) APPROXIMATELY 2-3 HOURS BEFORE SEX, THEN TOOK A SECOND HALF (50 MG) 0.5 H
  2. COENZYME Q10 [Concomitant]
     Active Substance: UBIDECARENONE
     Dosage: 200 MG ONE DAILY
     Dates: start: 201502
  3. ZINC [Concomitant]
     Active Substance: ZINC\ZINC CHLORIDE
     Dosage: 50 MG, UNK
     Dates: start: 1980
  4. MAGNESIUM [Concomitant]
     Active Substance: MAGNESIUM
     Indication: MUSCLE SPASMS
     Dosage: 100 MG, 1X/DAY
     Dates: start: 2010
  5. VITAMIN D [Concomitant]
     Active Substance: CHOLECALCIFEROL
     Dosage: 3000 IU, UNK
     Dates: start: 2015
  6. CATAFLAM [Concomitant]
     Active Substance: DICLOFENAC POTASSIUM
     Indication: MUSCLE RELAXANT THERAPY
     Dosage: 50 MG, AS NEEDED
     Dates: start: 1996
  7. CARDURA [Concomitant]
     Active Substance: DOXAZOSIN MESYLATE
     Dosage: 8 MG, UNK
     Dates: start: 1998, end: 20160303
  8. FLAXSEED [Concomitant]
     Active Substance: FLAX SEED
     Dosage: UNK
     Dates: start: 201502
  9. VITAMIN E [Concomitant]
     Active Substance: .ALPHA.-TOCOPHEROL
     Dosage: UNK
     Dates: start: 1970
  10. DICYCLOMINE [Concomitant]
     Active Substance: DICYCLOMINE HYDROCHLORIDE
     Indication: IRRITABLE BOWEL SYNDROME
     Dosage: 10 MG, 1X/DAY
     Dates: start: 2000
  11. NEXIUM [Concomitant]
     Active Substance: ESOMEPRAZOLE MAGNESIUM
     Dosage: 40 MG, UNK
     Dates: start: 2000
  12. AREDS 2 FORMULA [Concomitant]
     Indication: EYE DISORDER
     Dosage: 1 IN MORNING, 1 AT NIGHT
     Dates: start: 201601
  13. ASPIRIN. [Concomitant]
     Active Substance: ASPIRIN
     Dosage: 81 MG, UNK
     Dates: start: 2013
  14. OMEGA 3 FISH OIL [Concomitant]
     Active Substance: FISH OIL\OMEGA-3 FATTY ACIDS
     Indication: BLOOD CHOLESTEROL ABNORMAL
     Dosage: 1200 MG, 2X/DAY
     Dates: start: 201502
  15. TESTOPEL [Concomitant]
     Active Substance: TESTOSTERONE
     Indication: BLOOD TESTOSTERONE ABNORMAL
     Dosage: 75MG PELLET EVERY 4 MONTHS
     Dates: start: 201406
  16. SUPER B COMPLEX PLUS C [Concomitant]
     Dosage: 150 MG, DAILY
     Dates: start: 2013
  17. ZOCOR [Concomitant]
     Active Substance: SIMVASTATIN
     Indication: BLOOD CHOLESTEROL ABNORMAL
     Dosage: 40 MG, 1X/DAY
     Dates: start: 2000
  18. METOPROLOL SUCCINATE ER [Concomitant]
     Active Substance: METOPROLOL SUCCINATE
     Indication: BLOOD PRESSURE ABNORMAL
     Dosage: 50 MG ONE A DAY
     Dates: start: 2013
  19. FLOMAX [Concomitant]
     Active Substance: TAMSULOSIN HYDROCHLORIDE
     Dosage: 0.4 MG, UNK
     Dates: start: 20160423
  20. VIAGRA [Suspect]
     Active Substance: SILDENAFIL CITRATE
     Indication: ERECTILE DYSFUNCTION
     Dosage: 100 MG AS NEEDED
     Route: 048
     Dates: start: 1998
  21. VIAGRA [Suspect]
     Active Substance: SILDENAFIL CITRATE
     Dosage: 1/2 PILL NOW AND 1/2 PILL 30-45 MINUTES LATER
  22. POTASSIUM [Concomitant]
     Active Substance: POTASSIUM
     Indication: MUSCLE SPASMS
     Dosage: 595MG ONE DAILY
     Dates: start: 2010

REACTIONS (4)
  - Intentional product misuse [Not Recovered/Not Resolved]
  - Product counterfeit [Not Recovered/Not Resolved]
  - Retinal haemorrhage [Recovering/Resolving]
  - Drug ineffective [Not Recovered/Not Resolved]

NARRATIVE: CASE EVENT DATE: 20160107
